FAERS Safety Report 9960428 (Version 1)
Quarter: 2014Q1

REPORT INFORMATION
  Report Type: Report from Study
  Country: US (occurrence: US)
  Receive Date: 20140305
  Receipt Date: 20140305
  Transmission Date: 20141002
  Serious: No
  Sender: FDA-Public Use
  Company Number: US-ABBVIE-13P-163-1110342-00

PATIENT
  Age: 47 Year
  Sex: Female

DRUGS (6)
  1. HUMIRA [Suspect]
     Indication: CROHN^S DISEASE
     Dosage: LOADING DOSE
     Dates: start: 20130620
  2. PREDNISONE [Concomitant]
     Indication: PRODUCT USED FOR UNKNOWN INDICATION
     Dosage: 10MG DAILY
  3. AZATHIOPRINE [Concomitant]
     Indication: PRODUCT USED FOR UNKNOWN INDICATION
     Dosage: 200MG DAILY
  4. FLUOXETINE [Concomitant]
     Indication: DEPRESSION
     Dosage: 20MG DAILY
  5. B12 [Concomitant]
     Indication: ANAEMIA
  6. IRON [Concomitant]
     Indication: ANAEMIA
     Route: 042

REACTIONS (1)
  - Contusion [Not Recovered/Not Resolved]
